FAERS Safety Report 9978313 (Version 1)
Quarter: 2014Q1

REPORT INFORMATION
  Report Type: Report from Study
  Country: US (occurrence: US)
  Receive Date: 20140306
  Receipt Date: 20140306
  Transmission Date: 20141002
  Serious: No
  Sender: FDA-Public Use
  Company Number: US-ABBVIE-13P-163-1173149-00

PATIENT
  Age: 55 Year
  Sex: Male
  Weight: 96.25 kg

DRUGS (1)
  1. HUMIRA [Suspect]
     Indication: RHEUMATOID ARTHRITIS
     Route: 058
     Dates: start: 20131107

REACTIONS (7)
  - Dysphonia [Unknown]
  - Aphonia [Unknown]
  - Increased upper airway secretion [Unknown]
  - Productive cough [Unknown]
  - Respiratory tract infection [Unknown]
  - Nausea [Unknown]
  - Oral herpes [Unknown]
